FAERS Safety Report 8606751 (Version 3)
Quarter: 2014Q1

REPORT INFORMATION
  Report Type: Spontaneous
  Country: US (occurrence: US)
  Receive Date: 20120611
  Receipt Date: 20140107
  Transmission Date: 20141002
  Serious: Yes (Other)
  Sender: FDA-Public Use
  Company Number: US-ASTRAZENECA-2012SE36210

PATIENT
  Age: 16993 Day
  Sex: Male
  Weight: 72.6 kg

DRUGS (21)
  1. NEXIUM [Suspect]
     Indication: ABDOMINAL PAIN UPPER
     Dosage: THREE TIMES A DAY
     Route: 048
     Dates: start: 2001, end: 2011
  2. NEXIUM [Suspect]
     Indication: ULCER
     Dosage: THREE TIMES A DAY
     Route: 048
     Dates: start: 2001, end: 2011
  3. NEXIUM [Suspect]
     Indication: ABDOMINAL PAIN UPPER
     Route: 048
     Dates: start: 20030821
  4. NEXIUM [Suspect]
     Indication: ULCER
     Route: 048
     Dates: start: 20030821
  5. OMEPRAZOLE [Concomitant]
     Dates: start: 20120518
  6. OMEPRAZOLE [Concomitant]
     Dates: start: 20091113
  7. PRAVASTATIN SODIUM [Concomitant]
     Dates: start: 20111201
  8. PRILOSEC OTC [Concomitant]
     Dates: start: 20111227
  9. PRILOSEC OTC [Concomitant]
     Dates: start: 20110401
  10. TRAMADOL HCL [Concomitant]
     Dates: start: 20111209
  11. TRAMADOL HCL [Concomitant]
     Dates: start: 20090602
  12. ZOLPIDEM TARTRATE [Concomitant]
     Dates: start: 20120723
  13. PREDNISONE [Concomitant]
     Dates: start: 20120421
  14. PREDNISONE [Concomitant]
     Dates: start: 20030804
  15. LORATADINE [Concomitant]
     Dates: start: 20110216
  16. VIAGRA [Concomitant]
     Dates: start: 20090505
  17. ALENDRONATE SODIUM [Concomitant]
     Dates: start: 20090528
  18. NAPROXEN [Concomitant]
     Dates: start: 20090708
  19. LEXAPRO [Concomitant]
     Dates: start: 20090716
  20. AMITRIPTYLINE HCL [Concomitant]
     Dates: start: 20090806
  21. BACLOFEN [Concomitant]
     Dates: start: 20091001

REACTIONS (4)
  - Hip fracture [Unknown]
  - Osteoporosis [Unknown]
  - Arthritis [Unknown]
  - Bone disorder [Unknown]
